FAERS Safety Report 13996485 (Version 1)
Quarter: 2017Q3

REPORT INFORMATION
  Report Type: Spontaneous
  Country: TW (occurrence: TW)
  Receive Date: 20170921
  Receipt Date: 20170921
  Transmission Date: 20171128
  Serious: Yes (Other)
  Sender: FDA-Public Use
  Company Number: TW-ASTRAZENECA-2017SE93823

PATIENT
  Age: 83 Year
  Sex: Female

DRUGS (1)
  1. QUETIAPINE. [Suspect]
     Active Substance: QUETIAPINE
     Indication: DELIRIUM
     Route: 048

REACTIONS (4)
  - Aphasia [Recovered/Resolved]
  - Apraxia [Unknown]
  - Off label use [Unknown]
  - Product use in unapproved indication [Unknown]
